FAERS Safety Report 10882494 (Version 1)
Quarter: 2015Q1

REPORT INFORMATION
  Report Type: Spontaneous
  Country: US (occurrence: US)
  Receive Date: 20150303
  Receipt Date: 20150303
  Transmission Date: 20150721
  Serious: Yes (Hospitalization)
  Sender: FDA-Public Use
  Company Number: US-BIOMARINAP-US-2015-105674

PATIENT
  Age: 10 Year
  Sex: Male

DRUGS (1)
  1. ALDURAZYME [Suspect]
     Active Substance: LARONIDASE
     Indication: PRODUCT USED FOR UNKNOWN INDICATION
     Dosage: 11 MG, QOW
     Route: 041
     Dates: start: 20150213, end: 20150220

REACTIONS (4)
  - Asthenia [Unknown]
  - Malaise [Unknown]
  - Brain oedema [Unknown]
  - Pyrexia [Unknown]

NARRATIVE: CASE EVENT DATE: 201502
